FAERS Safety Report 6095062-2 (Version None)
Quarter: 2009Q1

REPORT INFORMATION
  Report Type: 
  Country: None (occurrence: None)
  Receive Date: 20090227
  Receipt Date: 20080110
  Transmission Date: 20090719
  Serious: No
  Sender: FDA-Public Use
  Company Number: A0702430A

PATIENT
  Age: 23 Year
  Sex: Female

DRUGS (2)
  1. LAMICTAL [Suspect]
     Indication: BIPOLAR DISORDER
     Dosage: 25MG PER DAY
     Route: 048
     Dates: start: 20080107
  2. ABILIFY [Concomitant]

REACTIONS (2)
  - PRURITUS [None]
  - RASH [None]
